FAERS Safety Report 4842461-X (Version None)
Quarter: 2005Q4

REPORT INFORMATION
  Report Type: 
  Country: None (occurrence: None)
  Receive Date: 20051129
  Receipt Date: 20051111
  Transmission Date: 20060501
  Serious: Yes (Other)
  Sender: FDA-Public Use
  Company Number: US200511000674

PATIENT
  Age: 95 Year
  Sex: Male

DRUGS (2)
  1. FORTEO [Suspect]
     Indication: OSTEOPOROSIS
     Dates: start: 20051001, end: 20051001
  2. FORTEO PEN (FORTEO PEN) [Concomitant]

REACTIONS (1)
  - HALLUCINATION [None]
